FAERS Safety Report 18538735 (Version 14)
Quarter: 2022Q4

REPORT INFORMATION
  Report Type: Report from Study
  Country: CA (occurrence: CA)
  Receive Date: 20201123
  Receipt Date: 20221128
  Transmission Date: 20230112
  Serious: Yes (Other)
  Sender: FDA-Public Use
  Company Number: CA-BAUSCH-BL-2020-001956

PATIENT
  Age: 42 Year
  Sex: Female
  Weight: 89.342 kg

DRUGS (16)
  1. CONTRAVE [Suspect]
     Active Substance: BUPROPION HYDROCHLORIDE\NALTREXONE HYDROCHLORIDE
     Indication: Weight control
     Dosage: ONE TABLET IN MORNING, 8/90 MG
     Route: 048
     Dates: start: 20191125, end: 20191201
  2. CONTRAVE [Suspect]
     Active Substance: BUPROPION HYDROCHLORIDE\NALTREXONE HYDROCHLORIDE
     Dosage: ONE TABLET IN MORNING AND ONE TABLET IN EVENING, 8/90 MG
     Route: 048
     Dates: start: 20191202, end: 20191208
  3. CONTRAVE [Suspect]
     Active Substance: BUPROPION HYDROCHLORIDE\NALTREXONE HYDROCHLORIDE
     Dosage: TWO TABLETS IN MORNING AND ONE TABLET IN EVENING, 8/90 MG
     Route: 048
     Dates: start: 20191209, end: 20191215
  4. CONTRAVE [Suspect]
     Active Substance: BUPROPION HYDROCHLORIDE\NALTREXONE HYDROCHLORIDE
     Dosage: TWO TABLETS IN MORNING AND TWO TABLETS IN EVENING, 8/90 MG
     Route: 048
     Dates: start: 20191216
  5. CONTRAVE [Suspect]
     Active Substance: BUPROPION HYDROCHLORIDE\NALTREXONE HYDROCHLORIDE
     Dosage: 8/90 MG, 1 TABLET IN THE MORNING, 1 AT LUNCH, AND 2 AT SUPPER
     Route: 048
     Dates: start: 202008, end: 2020
  6. CONTRAVE [Suspect]
     Active Substance: BUPROPION HYDROCHLORIDE\NALTREXONE HYDROCHLORIDE
     Dosage: 90/8 MG, 2 IN THE MORNING AND TWO AT SUPPER
     Route: 048
     Dates: start: 2020
  7. CONTRAVE [Suspect]
     Active Substance: BUPROPION HYDROCHLORIDE\NALTREXONE HYDROCHLORIDE
     Dosage: 8/90 MG, 2 TAB Q AM, 1 TAB Q PM
     Route: 048
     Dates: start: 20221031, end: 20221106
  8. CONTRAVE [Suspect]
     Active Substance: BUPROPION HYDROCHLORIDE\NALTREXONE HYDROCHLORIDE
     Dosage: 8/90 MG, 2 TAB Q AM, 1 TAB Q PM
     Route: 048
     Dates: start: 20221107, end: 20221113
  9. CONTRAVE [Suspect]
     Active Substance: BUPROPION HYDROCHLORIDE\NALTREXONE HYDROCHLORIDE
     Dosage: 8/90 MG,1 TAB Q AM
     Route: 048
     Dates: start: 20221114
  10. SINGULAIR [Concomitant]
     Active Substance: MONTELUKAST SODIUM
     Indication: Rhinitis
     Dosage: 10 MG, 1 IN 1 D
     Route: 048
  11. SINGULAIR [Concomitant]
     Active Substance: MONTELUKAST SODIUM
     Indication: Hypersensitivity
  12. FERROUS SULFATE [Concomitant]
     Active Substance: FERROUS SULFATE
     Indication: Prophylaxis
     Dosage: 300 MG, 1 IN 56 HR
     Route: 048
  13. BILASTINE [Concomitant]
     Active Substance: BILASTINE
     Indication: Hypersensitivity
     Dosage: 10 MG, 1 IN 1 D
     Route: 048
  14. INULIN [Concomitant]
     Active Substance: INULIN
     Indication: Constipation
     Dosage: 1 IN 1 D
     Route: 048
  15. IRON [Concomitant]
     Active Substance: IRON
     Indication: Product used for unknown indication
     Dosage: SUPPLEMENTS
  16. HERBALS\PLANTAGO OVATA LEAF [Concomitant]
     Active Substance: HERBALS\PLANTAGO OVATA LEAF
     Indication: Constipation
     Dosage: 15 TAB (1 IN 1 D)
     Route: 048

REACTIONS (28)
  - Blood urine present [Not Recovered/Not Resolved]
  - Road traffic accident [Unknown]
  - Stress [Not Recovered/Not Resolved]
  - Urine output increased [Not Recovered/Not Resolved]
  - Hunger [Not Recovered/Not Resolved]
  - Eating disorder [Not Recovered/Not Resolved]
  - Drug withdrawal syndrome [Unknown]
  - Menopause [Unknown]
  - Food poisoning [Recovered/Resolved]
  - Illness [Recovered/Resolved]
  - Nocturia [Not Recovered/Not Resolved]
  - COVID-19 [Recovered/Resolved]
  - Depressed mood [Recovered/Resolved]
  - Mental impairment [Not Recovered/Not Resolved]
  - Constipation [Recovering/Resolving]
  - Poor quality sleep [Not Recovered/Not Resolved]
  - Feeling abnormal [Unknown]
  - Middle insomnia [Not Recovered/Not Resolved]
  - Amenorrhoea [Not Recovered/Not Resolved]
  - Influenza [Recovering/Resolving]
  - Menstruation irregular [Not Recovered/Not Resolved]
  - Vomiting [Recovered/Resolved]
  - Diarrhoea [Recovered/Resolved]
  - Fatigue [Not Recovered/Not Resolved]
  - Product prescribing error [Unknown]
  - Product dose omission in error [Unknown]
  - Inappropriate schedule of product administration [Unknown]
  - Drug titration error [Unknown]

NARRATIVE: CASE EVENT DATE: 20191201
